FAERS Safety Report 5659211-X (Version None)
Quarter: 2008Q1

REPORT INFORMATION
  Report Type: 
  Country: None (occurrence: None)
  Receive Date: 20080201
  Receipt Date: 20050420
  Transmission Date: 20080703
  Serious: No
  Sender: FDA-Public Use
  Company Number: 20074400

PATIENT
  Sex: Male

DRUGS (1)
  1. LIORESAL [Suspect]
     Indication: MUSCLE SPASTICITY
     Dosage: 372.8 MCG, DAILY, INTRATHECAL
     Route: 037

REACTIONS (3)
  - DRUG INEFFECTIVE [None]
  - PRURITUS [None]
  - WITHDRAWAL SYNDROME [None]
